FAERS Safety Report 25276744 (Version 1)
Quarter: 2025Q2

REPORT INFORMATION
  Report Type: Spontaneous
  Country: FR (occurrence: FR)
  Receive Date: 20250507
  Receipt Date: 20250507
  Transmission Date: 20250717
  Serious: Yes (Hospitalization)
  Sender: ACCORD
  Company Number: None

PATIENT
  Age: 54 Year
  Sex: Male

DRUGS (17)
  1. FUROSEMIDE [Suspect]
     Active Substance: FUROSEMIDE
     Indication: Oedema
     Dates: start: 20250323, end: 20250323
  2. ATOVAQUONE [Concomitant]
     Active Substance: ATOVAQUONE
  3. VALACYCLOVIR HYDROCHLORIDE [Concomitant]
     Active Substance: VALACYCLOVIR HYDROCHLORIDE
  4. LACTULOSE [Concomitant]
     Active Substance: LACTULOSE
  5. ELTROMBOPAG OLAMINE [Concomitant]
     Active Substance: ELTROMBOPAG OLAMINE
  6. POSACONAZOLE [Concomitant]
     Active Substance: POSACONAZOLE
  7. CASPOFUNGIN [Concomitant]
     Active Substance: CASPOFUNGIN
  8. PIPERACILLIN AND TAZOBACTAM [Concomitant]
     Active Substance: PIPERACILLIN SODIUM\TAZOBACTAM SODIUM
  9. PANTOPRAZOLE [Concomitant]
     Active Substance: PANTOPRAZOLE
  10. VIALEBEX [Concomitant]
     Active Substance: ALBUMIN HUMAN
  11. TRAMADOL HYDROCHLORIDE [Concomitant]
     Active Substance: TRAMADOL HYDROCHLORIDE
  12. ACUPAN [Concomitant]
     Active Substance: NEFOPAM HYDROCHLORIDE
  13. RAMIPRIL [Concomitant]
     Active Substance: RAMIPRIL
  14. CYCLOSPORINE [Concomitant]
     Active Substance: CYCLOSPORINE
  15. COLISTIN SULFATE [Concomitant]
     Active Substance: COLISTIN SULFATE
  16. FUROSEMIDE [Suspect]
     Active Substance: FUROSEMIDE
     Indication: Oedema
     Dates: start: 20250324, end: 20250324
  17. FUROSEMIDE [Suspect]
     Active Substance: FUROSEMIDE
     Indication: Oedema
     Dates: start: 20250325, end: 20250325

REACTIONS (2)
  - Metabolic alkalosis [Not Recovered/Not Resolved]
  - Hypokalaemia [Recovered/Resolved]

NARRATIVE: CASE EVENT DATE: 20250325
